FAERS Safety Report 26202575 (Version 1)
Quarter: 2025Q4

REPORT INFORMATION
  Report Type: Spontaneous
  Country: CN (occurrence: CN)
  Receive Date: 20251226
  Receipt Date: 20251226
  Transmission Date: 20260117
  Serious: Yes (Other)
  Sender: ROCHE
  Company Number: CN-ROCHE-10000461745

PATIENT
  Age: 13 Year
  Sex: Female

DRUGS (3)
  1. ACTEMRA [Suspect]
     Active Substance: TOCILIZUMAB
     Indication: Juvenile idiopathic arthritis
     Route: 041
     Dates: start: 20251208, end: 20251208
  2. EPINEPHRINE [Concomitant]
     Active Substance: EPINEPHRINE
  3. DEXAMETHASONE [Concomitant]
     Active Substance: DEXAMETHASONE

REACTIONS (8)
  - Flushing [Recovering/Resolving]
  - Peripheral coldness [Recovering/Resolving]
  - Chills [Recovering/Resolving]
  - Hyperpyrexia [Recovering/Resolving]
  - Chest discomfort [Recovering/Resolving]
  - Dyspnoea [Recovering/Resolving]
  - Abdominal pain [Recovering/Resolving]
  - Hypotension [Unknown]

NARRATIVE: CASE EVENT DATE: 20251208
